FAERS Safety Report 6829094-0 (Version None)
Quarter: 2010Q3

REPORT INFORMATION
  Report Type: 
  Country: None (occurrence: None)
  Receive Date: 20100709
  Receipt Date: 20070430
  Transmission Date: 20110219
  Serious: No
  Sender: FDA-Public Use
  Company Number: US-PFIZER INC-2007017713

PATIENT
  Sex: Female
  Weight: 59.87 kg

DRUGS (5)
  1. CHANTIX [Suspect]
     Indication: SMOKING CESSATION THERAPY
     Route: 048
     Dates: start: 20070228
  2. PREMPRO [Concomitant]
     Indication: MENOPAUSE
     Route: 048
  3. LISINOPRIL [Concomitant]
     Route: 048
  4. OXYCONTIN [Concomitant]
     Indication: PAIN
     Route: 048
  5. PERCOCET [Concomitant]
     Indication: PAIN
     Route: 048

REACTIONS (3)
  - DYSGEUSIA [None]
  - INCREASED UPPER AIRWAY SECRETION [None]
  - NAUSEA [None]
